FAERS Safety Report 6697176-2 (Version None)
Quarter: 2010Q2

REPORT INFORMATION
  Report Type: 
  Country: None (occurrence: None)
  Receive Date: 20100426
  Receipt Date: 20100416
  Transmission Date: 20101027
  Serious: Yes (Hospitalization)
  Sender: FDA-Public Use
  Company Number: KR-PFIZER INC-2008039996

PATIENT
  Age: 72 Year
  Sex: Male

DRUGS (7)
  1. *FLUOROURACIL [Suspect]
     Indication: COLORECTAL CANCER
     Dosage: 400 MG/M2, 1 EVERY 2 WEEKS
     Route: 040
     Dates: start: 20080306, end: 20080425
  2. *FLUOROURACIL [Suspect]
     Dosage: 2400 MG/M2, 1 EVERY 2 WEEKS
     Route: 042
     Dates: start: 20080306, end: 20080427
  3. *CALCIUM FOLINATE [Suspect]
     Indication: COLORECTAL CANCER
     Dosage: 400 MG/M2, 1 EVERY 2 WEEKS
     Route: 042
     Dates: start: 20080306, end: 20080425
  4. SUNITINIB MALATE [Suspect]
     Indication: COLORECTAL CANCER
     Dosage: UNK
     Route: 048
     Dates: start: 20080306, end: 20080430
  5. IRINOTECAN HCL [Suspect]
     Indication: COLORECTAL CANCER
     Dosage: 180 MG/M2, QD EVERY 2 WEEKS
     Route: 042
     Dates: start: 20080306, end: 20080425
  6. OXYCODONE HCL [Concomitant]
     Route: 048
     Dates: start: 20080424, end: 20080516
  7. MORPHINE SULFATE [Concomitant]
     Route: 042
     Dates: start: 20080424, end: 20080516

REACTIONS (3)
  - DIARRHOEA [None]
  - NEUTROPENIA [None]
  - RENAL FAILURE ACUTE [None]
